FAERS Safety Report 4307182-0 (Version None)
Quarter: 2004Q1

REPORT INFORMATION
  Report Type: 
  Country: None (occurrence: None)
  Receive Date: 20040225
  Receipt Date: 20040212
  Transmission Date: 20041129
  Serious: Yes (Life-Threatening, Hospitalization)
  Sender: FDA-Public Use
  Company Number: 22980

PATIENT
  Age: 78 Year
  Sex: Male

DRUGS (5)
  1. NITROGLYCERIN [Suspect]
     Indication: CORONARY ARTERY ATHEROSCLEROSIS
     Dosage: 5 MG (5 MG, 1 IN 1 DAY(S)
     Route: 062
  2. TAREG (VALSARTAN) [Suspect]
     Indication: ESSENTIAL HYPERTENSION
     Dosage: 160 MG (160 MG, 1 IN 1 DAY(S)
     Route: 048
  3. MONO-TILDIEM LP (DILTIAZEM HYDROCHLORIDE) [Suspect]
     Indication: ESSENTIAL HYPERTENSION
     Dosage: 300 MG (300 MG, 1 IN 1 DAY(S))
     Route: 048
  4. FENOFIBRATE [Concomitant]
  5. PLAVIX [Concomitant]

REACTIONS (11)
  - ASPARTATE AMINOTRANSFERASE INCREASED [None]
  - BLOOD AMYLASE INCREASED [None]
  - BLOOD LACTATE DEHYDROGENASE INCREASED [None]
  - BUNDLE BRANCH BLOCK RIGHT [None]
  - CARDIAC ARREST [None]
  - DEPRESSED LEVEL OF CONSCIOUSNESS [None]
  - HYPERKALAEMIA [None]
  - LIPASE INCREASED [None]
  - MYDRIASIS [None]
  - PULSE PRESSURE DECREASED [None]
  - RENAL FAILURE ACUTE [None]
